FAERS Safety Report 14267752 (Version 2)
Quarter: 2017Q4

REPORT INFORMATION
  Report Type: Report from Study
  Country: BR (occurrence: BR)
  Receive Date: 20171211
  Receipt Date: 20171221
  Transmission Date: 20180321
  Serious: Yes (Hospitalization, Other)
  Sender: FDA-Public Use
  Company Number: BR-ROCHE-2035222

PATIENT
  Sex: Female
  Weight: 94 kg

DRUGS (8)
  1. XOLAIR [Suspect]
     Active Substance: OMALIZUMAB
     Indication: ASTHMA
     Dosage: 2 DF EVERY 15 DAYS 3 YEARS AGO.?POWDER AND SOLVENT FOR SOLUTION FOR INJECTION.
     Route: 058
  2. XOLAIR [Suspect]
     Active Substance: OMALIZUMAB
     Route: 058
  3. XOLAIR [Suspect]
     Active Substance: OMALIZUMAB
     Dosage: UNK, POWDER AND SOLVENT FOR SOLUTION FOR INJECTION
     Route: 058
     Dates: start: 20161223
  4. XOLAIR [Suspect]
     Active Substance: OMALIZUMAB
     Dosage: 4 DF (150 MG EVERY 15 DAYS), QMO, POWDER AND SOLVENT FOR SOLUTION FOR INJECTION
     Route: 058
     Dates: start: 201503
  5. XOLAIR [Suspect]
     Active Substance: OMALIZUMAB
     Dosage: 300 MG, EVERY 15 DAYS, POWDER AND SOLVENT FOR SOLUTION FOR INJECTION
     Route: 058
     Dates: start: 201505
  6. SPIRIVA [Concomitant]
     Active Substance: TIOTROPIUM BROMIDE MONOHYDRATE
     Indication: ASTHMA
     Dosage: QD INCASE OF EPISODES, SINCE 3 YEARS AGO
     Route: 055
  7. PREDSIM [Concomitant]
     Active Substance: PREDNISOLONE
     Indication: ASTHMA
     Dosage: 1 DF, QD SINCE 3 YEARS AGO
     Route: 048
  8. SALBUTAMOL [Concomitant]
     Active Substance: ALBUTEROL
     Indication: ASTHMA
     Dosage: TID (IN CASE OF EPISODES) SINCE 3 YEARS AGO
     Route: 055

REACTIONS (8)
  - Asthma [Recovering/Resolving]
  - Asthmatic crisis [Recovering/Resolving]
  - Sinusitis [Unknown]
  - Wheezing [Not Recovered/Not Resolved]
  - Drug ineffective [Recovering/Resolving]
  - Neck pain [Not Recovered/Not Resolved]
  - Diabetes mellitus [Recovering/Resolving]
  - Pneumonia [Recovering/Resolving]
